FAERS Safety Report 5467429-4 (Version None)
Quarter: 2007Q3

REPORT INFORMATION
  Report Type: 
  Country: None (occurrence: None)
  Receive Date: 20070925
  Receipt Date: 20070914
  Transmission Date: 20080115
  Serious: Yes (Death)
  Sender: FDA-Public Use
  Company Number: GR-PFIZER INC-2007077215

PATIENT
  Sex: Female

DRUGS (18)
  1. EPIRUBICIN HYDROCHLORIDE [Suspect]
     Indication: BREAST CANCER
     Dosage: DAILY DOSE:187MG
     Route: 042
  2. EPIRUBICIN HYDROCHLORIDE [Suspect]
     Dosage: DAILY DOSE:187MG
     Route: 042
  3. EPIRUBICIN HYDROCHLORIDE [Suspect]
     Dosage: DAILY DOSE:187MG
     Route: 042
  4. CYCLOPHOSPHAMIDE [Suspect]
     Indication: BREAST CANCER
     Dosage: DAILY DOSE:1428MG
     Route: 042
  5. CYCLOPHOSPHAMIDE [Suspect]
     Dosage: DAILY DOSE:714MG
     Route: 042
  6. CYCLOPHOSPHAMIDE [Suspect]
     Dosage: DAILY DOSE:714MG
     Route: 042
  7. METHOTREXATE [Suspect]
     Indication: BREAST CANCER
     Dosage: DAILY DOSE:97MG
     Route: 042
  8. METHOTREXATE [Suspect]
     Dosage: DAILY DOSE:49MG
     Route: 042
  9. METHOTREXATE [Suspect]
     Dosage: DAILY DOSE:49MG
     Route: 042
  10. FLUOROURACIL [Suspect]
     Indication: BREAST CANCER
     Dosage: DAILY DOSE:1428MG
     Route: 042
  11. FLUOROURACIL [Suspect]
     Dosage: DAILY DOSE:714MG
     Route: 042
  12. FLUOROURACIL [Suspect]
     Dosage: DAILY DOSE:714MG
     Route: 042
  13. TAXOTERE [Suspect]
     Indication: BREAST CANCER
     Dosage: DAILY DOSE:59MG
     Route: 042
  14. ZOFRON [Concomitant]
  15. ZANTAC [Concomitant]
  16. FENISTIL [Concomitant]
  17. DEXAMETHASONE [Concomitant]
  18. NEULASTA [Concomitant]

REACTIONS (2)
  - ACUTE RESPIRATORY DISTRESS SYNDROME [None]
  - SEPSIS [None]
